FAERS Safety Report 4355436-4 (Version None)
Quarter: 2004Q2

REPORT INFORMATION
  Report Type: 
  Country: None (occurrence: None)
  Receive Date: 20040505
  Receipt Date: 20040423
  Transmission Date: 20050107
  Serious: Yes (Hospitalization)
  Sender: FDA-Public Use
  Company Number: 2004028073

PATIENT
  Age: 6 Year
  Sex: Male

DRUGS (6)
  1. ZITHROMAX [Suspect]
     Indication: PYREXIA
     Dosage: 190 MG, ORAL
     Route: 048
     Dates: start: 20040413, end: 20040415
  2. ACETYLSALICYLIC ACID SRT [Suspect]
     Indication: KAWASAKI'S DISEASE
     Dosage: 1000 MG, ORAL
     Route: 048
     Dates: start: 20040415, end: 20040419
  3. FOLIC AICD (FOLIC ACID) [Concomitant]
  4. THEOPHYLLINE [Concomitant]
  5. KETOTIFEN [Concomitant]
  6. THYROID TAB [Concomitant]

REACTIONS (5)
  - CHEILITIS [None]
  - CONJUNCTIVAL HYPERAEMIA [None]
  - EXANTHEM [None]
  - LIVER DISORDER [None]
  - PYREXIA [None]
